FAERS Safety Report 22302787 (Version 2)
Quarter: 2023Q2

REPORT INFORMATION
  Report Type: Spontaneous
  Country: CN (occurrence: CN)
  Receive Date: 20230510
  Receipt Date: 20230526
  Transmission Date: 20230721
  Serious: Yes (Life-Threatening, Hospitalization, Other)
  Sender: FDA-Public Use
  Company Number: CN-Accord-357068

PATIENT
  Age: 41 Year
  Sex: Male

DRUGS (4)
  1. CISPLATIN [Suspect]
     Active Substance: CISPLATIN
     Indication: Cholangiocarcinoma
  2. GEMCITABINE [Suspect]
     Active Substance: GEMCITABINE
     Indication: Cholangiocarcinoma
     Dosage: RESUMED WITH A COMBINED REGIMEN OF GEMCITABINE/CISPLATIN
     Route: 042
  3. PACLITAXEL [Suspect]
     Active Substance: PACLITAXEL
     Indication: Cholangiocarcinoma
     Dosage: 6 DOSES
     Route: 042
  4. GEMCITABINE [Suspect]
     Active Substance: GEMCITABINE
     Indication: Cholangiocarcinoma
     Dosage: 6 DOSES- GEMCITABINE/NANOPARTICLE ALBUMIN-BOUND PACLITAXEL (NAB-PACLITAXEL) REGIMEN
     Route: 042

REACTIONS (7)
  - Acute coronary syndrome [Recovered/Resolved]
  - Cardiotoxicity [Recovered/Resolved]
  - Wellens^ syndrome [Recovered/Resolved]
  - Angina pectoris [Recovered/Resolved]
  - Coronary artery stenosis [Recovered/Resolved]
  - Hypoaesthesia [Unknown]
  - Drug intolerance [Unknown]
